FAERS Safety Report 9331832 (Version 1)
Quarter: 2013Q2

REPORT INFORMATION
  Report Type: Spontaneous
  Country: JP (occurrence: None)
  Receive Date: 20130603
  Receipt Date: 20130603
  Transmission Date: 20140414
  Serious: Yes (Death, Other)
  Sender: FDA-Public Use
  Company Number: SYM-2013-04098

PATIENT
  Age: 73 Year
  Sex: Female

DRUGS (4)
  1. FLUOROURACIL [Suspect]
     Indication: RECTAL CANCER RECURRENT
     Dates: start: 201106
  2. OXALIPLATIN (OXALIPLATIN) (OXALIPLATIN) [Suspect]
     Indication: RECTAL CANCER RECURRENT
     Dates: start: 201106
  3. LEUCOVORIN (FOLINIC ACID) (FOLINIC ACID) [Suspect]
     Indication: RECTAL CANCER RECURRENT
     Dates: start: 201106
  4. BEVACIZUMAB [Concomitant]

REACTIONS (3)
  - Bone marrow failure [None]
  - Tumour marker increased [None]
  - Metastases to pelvis [None]
